FAERS Safety Report 7771001-0 (Version None)
Quarter: 2011Q3

REPORT INFORMATION
  Report Type: 
  Country: None (occurrence: None)
  Receive Date: 20110922
  Receipt Date: 20100823
  Transmission Date: 20111222
  Serious: No
  Sender: FDA-Public Use
  Company Number: US-ASTRAZENECA-2010SE39544

PATIENT
  Age: 877 Month
  Sex: Female
  Weight: 67.1 kg

DRUGS (1)
  1. SEROQUEL XR [Suspect]
     Indication: MAJOR DEPRESSION
     Route: 048
     Dates: start: 20100501

REACTIONS (5)
  - INSOMNIA [None]
  - PANIC ATTACK [None]
  - CRYING [None]
  - HEADACHE [None]
  - DRUG DOSE OMISSION [None]
